FAERS Safety Report 10415490 (Version 2)
Quarter: 2014Q3

REPORT INFORMATION
  Report Type: Report from Study
  Country: BE (occurrence: BE)
  Receive Date: 20140828
  Receipt Date: 20140828
  Transmission Date: 20150326
  Serious: Yes (Death, Hospitalization, Other)
  Sender: FDA-Public Use
  Company Number: BE-SA-CAMP-1002500

PATIENT
  Age: 65 Year
  Sex: Female
  Weight: 44.5 kg

DRUGS (20)
  1. VINCRISTINE [Suspect]
     Active Substance: VINCRISTINE
     Indication: T-CELL LYMPHOMA
     Dosage: UNK, CYCLE 4
     Route: 065
     Dates: start: 20121112
  2. VINCRISTINE [Suspect]
     Active Substance: VINCRISTINE
     Indication: T-CELL LYMPHOMA
     Dosage: 1.4 MG/M2, UNK (FOLLOWING CYCLES)
     Route: 065
  3. PEGFILGRASTIM [Suspect]
     Active Substance: PEGFILGRASTIM
     Indication: T-CELL LYMPHOMA
     Dosage: 6 MG, UNK, ONCE PER CYCLE
     Route: 059
     Dates: start: 20120914
  4. CALCIUM CARBONATE. [Concomitant]
     Active Substance: CALCIUM CARBONATE
     Indication: PROPHYLAXIS
     Dosage: 1 G, QD
     Route: 048
  5. ALEMTUZUMAB [Suspect]
     Active Substance: ALEMTUZUMAB
     Indication: T-CELL LYMPHOMA
     Dosage: 30 MG, UNK (1 TIMES IN EVERY 2 WEEKS)
     Route: 042
     Dates: start: 20120912, end: 20121017
  6. DOXORUBICIN HYDROCHLORIDE. [Suspect]
     Active Substance: DOXORUBICIN HYDROCHLORIDE
     Indication: T-CELL LYMPHOMA
     Dosage: UNK, CYCLE 4
     Route: 065
     Dates: start: 20121112
  7. ACICLOVIR [Concomitant]
     Active Substance: ACYCLOVIR
     Indication: PROPHYLAXIS
     Dosage: 400 MG, BID
     Route: 048
  8. COLECALCIFEROL [Concomitant]
     Active Substance: CHOLECALCIFEROL
     Indication: PROPHYLAXIS
     Dosage: 880 IU, QD
     Route: 048
  9. GANCICLOVIR [Concomitant]
     Active Substance: GANCICLOVIR
     Indication: ANTIVIRAL PROPHYLAXIS
     Dosage: 230 MG, QD
     Route: 042
     Dates: start: 20120926
  10. CYCLOPHOSPHAMIDE. [Suspect]
     Active Substance: CYCLOPHOSPHAMIDE
     Indication: T-CELL LYMPHOMA
     Dosage: 750 MG/M2, UNK (1 TIMES IN EVERY 2 WEEKS)
     Route: 042
     Dates: start: 20120912, end: 20121017
  11. DOXORUBICIN HYDROCHLORIDE. [Suspect]
     Active Substance: DOXORUBICIN HYDROCHLORIDE
     Indication: T-CELL LYMPHOMA
     Dosage: 50 MG/M2, UNK (1 TIMES IN 15 DAYS)
     Route: 042
     Dates: start: 20120912, end: 20121017
  12. PREDNISONE. [Suspect]
     Active Substance: PREDNISONE
     Indication: T-CELL LYMPHOMA
     Dosage: 32 MG, UNK, BEFORE PREPHASE, ON DAYS 1-3 AND AFTER CHEMOTHERAPY
     Route: 048
     Dates: start: 20120828, end: 201210
  13. PREDNISONE. [Suspect]
     Active Substance: PREDNISONE
     Indication: T-CELL LYMPHOMA
     Dosage: UNK, CYCLE 4
     Route: 065
     Dates: start: 20121112
  14. LORAZEPAM. [Concomitant]
     Active Substance: LORAZEPAM
     Indication: INSOMNIA
     Dosage: 1 MG, QD
     Route: 048
  15. ALEMTUZUMAB [Suspect]
     Active Substance: ALEMTUZUMAB
     Indication: T-CELL LYMPHOMA
     Dosage: UNK, CYCLE 4
     Route: 065
     Dates: start: 20121112
  16. CYCLOPHOSPHAMIDE. [Suspect]
     Active Substance: CYCLOPHOSPHAMIDE
     Indication: T-CELL LYMPHOMA
     Dosage: UNK, CYCLE 4
     Route: 065
     Dates: start: 20121112
  17. VINCRISTINE [Suspect]
     Active Substance: VINCRISTINE
     Indication: T-CELL LYMPHOMA
     Dosage: 1 MG/M2, UNK (ONCE IN EVERY 2 WEEKS)
     Route: 042
     Dates: start: 20120905
  18. VINCRISTINE [Suspect]
     Active Substance: VINCRISTINE
     Indication: T-CELL LYMPHOMA
     Dosage: 1.4 MG/M2, UNK (1 TIMES IN 15 DAYS)
     Route: 042
     Dates: start: 20120912, end: 20121017
  19. PREDNISONE. [Suspect]
     Active Substance: PREDNISONE
     Indication: T-CELL LYMPHOMA
     Dosage: 32 MG, QD
     Route: 048
     Dates: start: 20120828
  20. AMLODIPINE [Concomitant]
     Active Substance: AMLODIPINE BESYLATE
     Indication: HYPERTENSION
     Dosage: 5 MG, BID
     Route: 048
     Dates: start: 20121016

REACTIONS (7)
  - Parkinson^s disease [Not Recovered/Not Resolved]
  - Febrile neutropenia [Recovered/Resolved]
  - Platelet count decreased [Not Recovered/Not Resolved]
  - Febrile neutropenia [Recovered/Resolved]
  - Depression [Recovered/Resolved]
  - General physical health deterioration [Recovered/Resolved]
  - Death [Fatal]

NARRATIVE: CASE EVENT DATE: 20121025
